FAERS Safety Report 8379205-3 (Version None)
Quarter: 2012Q1

REPORT INFORMATION
  Report Type: 
  Country: None (occurrence: None)
  Receive Date: 20120323
  Receipt Date: 20110315
  Transmission Date: 20120608
  Serious: Yes (Other)
  Sender: FDA-Public Use
  Company Number: 163-21880-11032023

PATIENT
  Age: 84 Year
  Sex: Female

DRUGS (2)
  1. REVLIMID [Suspect]
     Indication: ANAEMIA
     Dosage: 25 MG, 1 IN 1 D, PO 10 MG, 1 IN 1 D, PO
     Route: 048
     Dates: start: 20110301
  2. REVLIMID [Suspect]
     Indication: ANAEMIA
     Dosage: 25 MG, 1 IN 1 D, PO 10 MG, 1 IN 1 D, PO
     Route: 048
     Dates: start: 20101101, end: 20110301

REACTIONS (2)
  - RENAL FAILURE [None]
  - WHITE BLOOD CELL COUNT DECREASED [None]
